FAERS Safety Report 10404245 (Version 1)
Quarter: 2014Q1

REPORT INFORMATION
  Report Type: Spontaneous
  Country: US (occurrence: None)
  Receive Date: 20140131
  Receipt Date: 20140131
  Transmission Date: 20141002
  Serious: Yes (Other)
  Sender: FDA-Public Use
  Company Number: 033124

PATIENT
  Sex: Female
  Weight: 94.8 kg

DRUGS (6)
  1. KEPPRA [Suspect]
     Dosage: 3 IN AM AND 3 IN PM)
     Route: 048
     Dates: start: 2008
  2. TEGRETOL [Concomitant]
  3. PAMELOR [Concomitant]
  4. INDERAL [Concomitant]
  5. HYDROCHLOROTHIAZIDE [Concomitant]
  6. MELATONIN [Concomitant]

REACTIONS (5)
  - Complex partial seizures [None]
  - Grand mal convulsion [None]
  - Blood pressure increased [None]
  - Insomnia [None]
  - Inappropriate schedule of drug administration [None]
